FAERS Safety Report 21692975 (Version 1)
Quarter: 2022Q4

REPORT INFORMATION
  Report Type: Spontaneous
  Country: CN (occurrence: CN)
  Receive Date: 20221207
  Receipt Date: 20221207
  Transmission Date: 20230113
  Serious: Yes (Hospitalization)
  Sender: FDA-Public Use
  Company Number: None

PATIENT
  Age: 43 Year
  Sex: Female
  Weight: 50 kg

DRUGS (6)
  1. DOCETAXEL [Suspect]
     Active Substance: DOCETAXEL
     Indication: Breast cancer
     Dosage: UNK, QD
     Route: 065
     Dates: start: 20220907, end: 20220907
  2. CARBOPLATIN [Suspect]
     Active Substance: CARBOPLATIN
     Indication: Breast cancer
     Dosage: UNK, QD
     Route: 065
     Dates: start: 20220907, end: 20220907
  3. TRASTUZUMAB [Suspect]
     Active Substance: TRASTUZUMAB
     Indication: Breast cancer
     Dosage: UNK, QD, STRENGTH  150 MILLIGRAM
     Route: 065
     Dates: start: 20220907, end: 20220907
  4. CARBOPLATIN [Suspect]
     Active Substance: CARBOPLATIN
     Indication: Breast cancer
     Dosage: 570 MILLIGRAM, QD, IV DRIP
     Route: 042
     Dates: start: 20221008, end: 20221008
  5. DOCETAXEL [Suspect]
     Active Substance: DOCETAXEL
     Indication: Breast cancer
     Dosage: 115 MILLIGRAM, QD, 115 MILLIGRAM, QD; IV DRIP
     Route: 042
     Dates: start: 20221008, end: 20221008
  6. TRASTUZUMAB [Suspect]
     Active Substance: TRASTUZUMAB
     Indication: Breast cancer
     Dosage: 300 MILLIGRAM, QD; IV DRIP, STRENGTH 150 MILLIGRAM
     Route: 042
     Dates: start: 20221008, end: 20221008

REACTIONS (1)
  - Myelosuppression [Recovering/Resolving]
